FAERS Safety Report 12463394 (Version 1)
Quarter: 2016Q2

REPORT INFORMATION
  Report Type: Spontaneous
  Country: US (occurrence: None)
  Receive Date: 20160613
  Receipt Date: 20160613
  Transmission Date: 20160815
  Serious: No
  Sender: FDA-Public Use
  Company Number: None

PATIENT
  Age: 56 Year
  Sex: Male
  Weight: 54.43 kg

DRUGS (6)
  1. BREO ELLIPTA [Suspect]
     Active Substance: FLUTICASONE FUROATE\VILANTEROL TRIFENATATE
     Indication: CHRONIC OBSTRUCTIVE PULMONARY DISEASE
     Route: 055
  2. TRIBULUS TERRESTIS [Concomitant]
  3. BREO ELLIPTA [Suspect]
     Active Substance: FLUTICASONE FUROATE\VILANTEROL TRIFENATATE
     Indication: ASTHMA
     Route: 055
  4. MULTI-VITAMIN [Concomitant]
     Active Substance: .ALPHA.-TOCOPHEROL ACETATE, DL-\ASCORBIC ACID\CYANOCOBALAMIN\FLUORIDE ION\FOLIC ACID\NIACIN\PYRIDOXINE\RIBOFLAVIN\THIAMINE\VITAMIN A\VITAMIN D
  5. CLONAZEPAM. [Concomitant]
     Active Substance: CLONAZEPAM
  6. FLAXSEED [Concomitant]
     Active Substance: FLAX SEED

REACTIONS (10)
  - Pyrexia [None]
  - Malaise [None]
  - Pharyngeal erythema [None]
  - Medication residue present [None]
  - Pulmonary congestion [None]
  - Headache [None]
  - Rhinorrhoea [None]
  - Bronchitis [None]
  - Oropharyngeal pain [None]
  - Myalgia [None]

NARRATIVE: CASE EVENT DATE: 20160607
